FAERS Safety Report 14853372 (Version 6)
Quarter: 2020Q3

REPORT INFORMATION
  Report Type: Report from Study
  Country: FR (occurrence: FR)
  Receive Date: 20180507
  Receipt Date: 20200716
  Transmission Date: 20201102
  Serious: Yes (Death)
  Sender: FDA-Public Use
  Company Number: FR-PFIZER INC-2018176237

PATIENT
  Age: 61 Year
  Sex: Female
  Weight: 53 kg

DRUGS (6)
  1. SUTENT [Suspect]
     Active Substance: SUNITINIB MALATE
     Dosage: 50 MG, CYCLIC (2 WEEKS ON/3 WEEKS)
     Dates: start: 20170206, end: 20170509
  2. SUTENT [Suspect]
     Active Substance: SUNITINIB MALATE
     Indication: METASTATIC RENAL CELL CARCINOMA
     Dosage: 50 MG, CYCLIC (4 WEEKS ON/6 WEEKS)
     Dates: start: 20161122
  3. LYRICA [Concomitant]
     Active Substance: PREGABALIN
     Indication: PROCEDURAL PAIN
     Dosage: 225 MG, DAILY (3 TABLETS DAILY )
     Route: 048
  4. APROVEL [Concomitant]
     Active Substance: IRBESARTAN
     Indication: HYPERTENSION
     Dosage: UNK
     Route: 048
     Dates: start: 20170320
  5. ZYRTEC [Concomitant]
     Active Substance: CETIRIZINE HYDROCHLORIDE
     Indication: ALLERGY TO ANIMAL
     Dosage: UNK
  6. TRAMADOL. [Concomitant]
     Active Substance: TRAMADOL
     Indication: PROCEDURAL PAIN
     Dosage: UNK
     Route: 048

REACTIONS (12)
  - Neoplasm progression [Fatal]
  - Bronchitis [Unknown]
  - Gingivitis [Unknown]
  - Taste disorder [Unknown]
  - Diarrhoea [Unknown]
  - Eyelid oedema [Unknown]
  - Taste disorder [Not Recovered/Not Resolved]
  - Face oedema [Not Recovered/Not Resolved]
  - Mucosal inflammation [Unknown]
  - Aphthous ulcer [Unknown]
  - Fatigue [Unknown]
  - Faeces discoloured [Unknown]

NARRATIVE: CASE EVENT DATE: 20161129
